FAERS Safety Report 7710025-6 (Version None)
Quarter: 2011Q3

REPORT INFORMATION
  Report Type: 
  Country: None (occurrence: None)
  Receive Date: 20110825
  Receipt Date: 20110815
  Transmission Date: 20111222
  Serious: Yes (Other)
  Sender: FDA-Public Use
  Company Number: PHFR2011GB04528

PATIENT
  Sex: Female

DRUGS (6)
  1. ALENDRONIC ACID [Concomitant]
     Dosage: 70 MG, QW
     Route: 048
     Dates: start: 20090901
  2. SOTALOL HCL [Concomitant]
     Dosage: 160 MG/ DAY
     Route: 048
     Dates: start: 20090501
  3. ADCAL-D3 [Concomitant]
     Dosage: 2 TABLETS/ DAY
     Route: 048
     Dates: start: 20090901
  4. VALSARTAN [Concomitant]
     Dosage: 80 MG/ DAY
     Route: 048
     Dates: start: 20090501
  5. CITALOPRAM HYDROBROMIDE [Concomitant]
     Dosage: 10 MG/ DAY
     Route: 048
     Dates: start: 20090901
  6. FEMARA [Suspect]
     Indication: BREAST CANCER
     Dosage: 2.5 MG/ DAY
     Route: 048
     Dates: start: 20090601

REACTIONS (3)
  - DEMENTIA [None]
  - MEMORY IMPAIRMENT [None]
  - AMNESIA [None]
